FAERS Safety Report 15152599 (Version 2)
Quarter: 2018Q4

REPORT INFORMATION
  Report Type: Spontaneous
  Country: JP (occurrence: JP)
  Receive Date: 20180717
  Receipt Date: 20181126
  Transmission Date: 20190204
  Serious: Yes (Hospitalization)
  Sender: FDA-Public Use
  Company Number: JP-SUN PHARMACEUTICAL INDUSTRIES LTD-2018R1-178115

PATIENT
  Age: 46 Year
  Sex: Female

DRUGS (2)
  1. ETANERCEPT [Concomitant]
     Active Substance: ETANERCEPT
     Indication: RHEUMATOID ARTHRITIS
     Dosage: 25 MILLIGRAM/WEEKLY
     Route: 065
  2. METHOTREXATE. [Suspect]
     Active Substance: METHOTREXATE
     Indication: RHEUMATOID ARTHRITIS
     Dosage: 8-10MG/WEEK
     Route: 065

REACTIONS (3)
  - Pathological fracture [Recovering/Resolving]
  - Epstein-Barr virus infection [Recovering/Resolving]
  - Diffuse large B-cell lymphoma [Recovering/Resolving]
